FAERS Safety Report 21297832 (Version 1)
Quarter: 2022Q3

REPORT INFORMATION
  Report Type: Spontaneous
  Country: DE (occurrence: DE)
  Receive Date: 20220906
  Receipt Date: 20220906
  Transmission Date: 20221027
  Serious: Yes (Hospitalization, Other)
  Sender: FDA-Public Use
  Company Number: DE-009507513-2208DEU008696

PATIENT
  Age: 57 Year
  Sex: Female
  Weight: 58 kg

DRUGS (5)
  1. INLYTA [Suspect]
     Active Substance: AXITINIB
     Indication: Clear cell renal cell carcinoma
     Dosage: 5 MG
     Dates: start: 20200213
  2. PEMBROLIZUMAB [Suspect]
     Active Substance: PEMBROLIZUMAB
     Indication: Clear cell renal cell carcinoma
     Route: 042
     Dates: start: 20200213
  3. SERTRALIN ARROW [Concomitant]
     Indication: Depression
     Dosage: 150 MILLIGRAM
     Route: 048
     Dates: start: 202102
  4. DIAZEPAM [Concomitant]
     Active Substance: DIAZEPAM
     Indication: Depression
     Dosage: 5 MILLIGRAM
     Route: 048
  5. ISOPROMETHAZINE HYDROCHLORIDE [Concomitant]
     Active Substance: ISOPROMETHAZINE HYDROCHLORIDE
     Indication: Sleep disorder
     Dosage: 25 MILLIGRAM

REACTIONS (4)
  - Autoimmune hepatitis [Recovered/Resolved]
  - Superior vena cava stenosis [Unknown]
  - Splenomegaly [Unknown]
  - Lymphadenopathy [Unknown]

NARRATIVE: CASE EVENT DATE: 20210101
